FAERS Safety Report 8262948-X (Version None)
Quarter: 2012Q2

REPORT INFORMATION
  Report Type: 
  Country: None (occurrence: None)
  Receive Date: 20120405
  Receipt Date: 20120327
  Transmission Date: 20120825
  Serious: Yes (Death, Life-Threatening, Disabling)
  Sender: FDA-Public Use
  Company Number: JP-BRISTOL-MYERS SQUIBB COMPANY-14825632

PATIENT
  Age: 10 Year
  Sex: Female
  Weight: 20 kg

DRUGS (33)
  1. FAMOTIDINE INJ [Concomitant]
     Route: 042
  2. PANIPENEM + BETAMIPRON [Concomitant]
     Dosage: INJ
     Route: 042
     Dates: start: 20090622, end: 20090626
  3. MEROPENEM [Concomitant]
     Dosage: MEROPENEM HYDRATE INJ
     Route: 042
     Dates: start: 20090719, end: 20090723
  4. VORICONAZOLE [Concomitant]
     Dosage: TABS; 100MG/DAY ORAL 28AUG-ONG
     Route: 042
     Dates: start: 20090717, end: 20090827
  5. CLOFARABINE [Concomitant]
     Indication: ACUTE LYMPHOCYTIC LEUKAEMIA
     Dosage: FORM: INJ
     Route: 042
     Dates: start: 20100416, end: 20100418
  6. SPRYCEL [Suspect]
     Indication: ACUTE LYMPHOCYTIC LEUKAEMIA RECURRENT
     Dosage: 07-20APR;01MAY-22MAY;29MAY-11JUN;20JUN-06JUL;17JUL-06AUG;14AUG-03SEP;11-24SEP. INCREASED TO 50MG/DAY
     Route: 048
     Dates: start: 20090216
  7. METHOTREXATE [Suspect]
     Indication: ACUTE LYMPHOCYTIC LEUKAEMIA RECURRENT
     Dosage: 15MG 12JUN-26NOV09. INTRATHECAL 12MG 5-5FEB10
     Route: 048
     Dates: start: 20090612, end: 20100205
  8. CEFPIROME SULFATE [Concomitant]
     Dosage: INJ; 2.1G/D - 12JUN09-22JUN09;1.8G - 09JUL-19JUL09
     Route: 042
     Dates: start: 20090612, end: 20090719
  9. CYCLOPHOSPHAMIDE [Concomitant]
     Indication: ACUTE LYMPHOCYTIC LEUKAEMIA
     Dosage: INJ. CYCLOPHOSPHAMIDE HYDRATE
     Route: 042
     Dates: start: 20100416, end: 20100418
  10. ETOPOSIDE [Concomitant]
     Indication: ACUTE LYMPHOCYTIC LEUKAEMIA
     Dosage: INJ
     Route: 042
     Dates: start: 20100416, end: 20100418
  11. CEFTAZIDIME [Concomitant]
     Dosage: HYDRATE. INJ
     Route: 042
     Dates: start: 20100502, end: 20100511
  12. TEICOPLANIN [Concomitant]
     Dosage: INJ
     Route: 042
     Dates: start: 20100506, end: 20100514
  13. BIAPENEM [Concomitant]
     Dosage: INJ
     Route: 042
     Dates: start: 20100511, end: 20100514
  14. FOSFLUCONAZOLE [Concomitant]
     Dosage: INJ
     Route: 042
     Dates: start: 20090622, end: 20090630
  15. CYTARABINE [Concomitant]
     Indication: ACUTE LYMPHOCYTIC LEUKAEMIA
     Dosage: INJ. INTRARTHECAL . FROM 23-25MAR10 IV 2.2G 4 PER DAY
     Route: 042
     Dates: start: 20100219, end: 20100325
  16. MICAFUNGIN SODIUM [Concomitant]
     Dosage: ALSO 4-11DEC09 24FEB-15MAR10 23APR-14MAY10 23APR-14MAY10. INJ
     Route: 042
     Dates: start: 20091021, end: 20100514
  17. TAZOBACTAM [Concomitant]
     Dosage: INJ
     Route: 042
     Dates: start: 20091117, end: 20091127
  18. CEFPIROME SULFATE [Concomitant]
     Dosage: .4G 4/DAY 27NOV-44DEC09, .6G 3/DAY 1-9FEB10 22-25FEB10, .75G 4/DAY 1-4APR10 18-22APR10. INJ
     Route: 042
     Dates: start: 20091015, end: 20100422
  19. MEROPENEM [Concomitant]
     Dosage: FORM: INJ. ALSO 25FEB-12MAR10, 4 PER DAY 5-14APR10 23APR-2MAY10
     Route: 042
     Dates: start: 20100210, end: 20100502
  20. ELSPAR [Concomitant]
     Indication: ACUTE LYMPHOCYTIC LEUKAEMIA
     Dosage: INJ. 1 DF= 1500 UNIT.
     Route: 042
     Dates: start: 20100323, end: 20100325
  21. HYDROCORTISONE [Concomitant]
     Indication: ACUTE LYMPHOCYTIC LEUKAEMIA
     Dosage: ROUTE: INTRAARTHECAL. FORM: INJ
     Route: 037
     Dates: start: 20100130, end: 20100130
  22. CANDESARTAN CILEXETIL [Concomitant]
     Dosage: FORM: TABS
     Route: 048
     Dates: end: 20100513
  23. FOSFLUCONAZOLE [Concomitant]
     Dosage: INJ
     Route: 042
     Dates: start: 20100418, end: 20100422
  24. PREDNISOLONE [Concomitant]
     Indication: ACUTE LYMPHOCYTIC LEUKAEMIA
     Dosage: INJECTION
     Route: 042
     Dates: start: 20100323, end: 20100325
  25. PIPERACILLIN SODIUM [Concomitant]
     Dosage: INJ
     Route: 042
     Dates: start: 20090318, end: 20090327
  26. AMPHOTERICIN B FOR INJECTION [Concomitant]
     Dosage: INJ
     Route: 042
     Dates: start: 20090630, end: 20090717
  27. AMPHOTERICIN B [Concomitant]
     Indication: PROPHYLAXIS
     Route: 048
     Dates: end: 20100513
  28. SULBACTAM SODIUM [Concomitant]
     Dosage: INJ
     Route: 042
     Dates: start: 20100313
  29. LINEZOLID [Concomitant]
     Dosage: INJ
     Route: 042
     Dates: start: 20100502, end: 20100506
  30. MERCAPTOPURINE [Suspect]
     Indication: ACUTE LYMPHOCYTIC LEUKAEMIA RECURRENT
     Dosage: 38MG/D - 12JUN09-01JUL09 20MG/D - 02JUL09-06JUL09 10MG/D - 07JUL09-08JUL09;10-18MG 04SEP-ONG
     Route: 048
     Dates: start: 20090612
  31. INTERFERON ALFA [Suspect]
     Indication: ACUTE LYMPHOCYTIC LEUKAEMIA
     Route: 058
     Dates: start: 20091207, end: 20100505
  32. SULFAMETHOXAZOLE AND TRIMETHOPRIM [Concomitant]
     Indication: PROPHYLAXIS
     Route: 048
     Dates: end: 20100513
  33. PANIPENEM [Concomitant]
     Dosage: INJ.
     Route: 042
     Dates: start: 20091204, end: 20091214

REACTIONS (7)
  - ANAEMIA [None]
  - TRANSAMINASES INCREASED [None]
  - GENERALISED OEDEMA [None]
  - NEOPLASM MALIGNANT [None]
  - GASTROINTESTINAL HAEMORRHAGE [None]
  - PLEURAL EFFUSION [None]
  - CARDIAC FAILURE [None]
